FAERS Safety Report 10835186 (Version 3)
Quarter: 2016Q1

REPORT INFORMATION
  Report Type: Spontaneous
  Country: US (occurrence: US)
  Receive Date: 20150219
  Receipt Date: 20160216
  Transmission Date: 20160525
  Serious: Yes (Other)
  Sender: FDA-Public Use
  Company Number: US-APOTEX-2015AP006687

PATIENT
  Age: 8 Year
  Sex: Male

DRUGS (5)
  1. PSEUDOEPHEDRINE [Concomitant]
     Active Substance: PSEUDOEPHEDRINE
     Indication: PRODUCT USED FOR UNKNOWN INDICATION
     Dosage: 60 MG, QID, PRN
     Route: 064
  2. GUAIFENESIN DM [Concomitant]
     Active Substance: DEXTROMETHORPHAN\DEXTROMETHORPHAN HYDROBROMIDE\GUAIFENESIN
     Indication: COUGH
     Dosage: Q4H, PRN
     Route: 064
  3. PAROXETINE HYDROCHLORIDE. [Suspect]
     Active Substance: PAROXETINE HYDROCHLORIDE
     Indication: DEPRESSION
     Dosage: 20 MG, QD
     Route: 064
  4. ALBUTEROL                          /00139501/ [Concomitant]
     Active Substance: ALBUTEROL
     Indication: PRODUCT USED FOR UNKNOWN INDICATION
     Dosage: UNK, QID
     Route: 064
  5. HYDROPHILIC [Concomitant]
     Indication: PRODUCT USED FOR UNKNOWN INDICATION
     Dosage: APPLY TO THE AFFECTED AREA, BID
     Route: 064

REACTIONS (8)
  - Pneumonia [Unknown]
  - Abdominal pain [Unknown]
  - Foetal exposure during pregnancy [Unknown]
  - Hydrocephalus [Unknown]
  - Cerebral ventricle dilatation [Unknown]
  - Diarrhoea haemorrhagic [Unknown]
  - Asthma [Unknown]
  - Vomiting [Unknown]

NARRATIVE: CASE EVENT DATE: 20110102
